FAERS Safety Report 18957718 (Version 1)
Quarter: 2021Q1

REPORT INFORMATION
  Report Type: Spontaneous
  Country: ES (occurrence: ES)
  Receive Date: 20210302
  Receipt Date: 20210302
  Transmission Date: 20210420
  Serious: Yes (Other)
  Sender: FDA-Public Use
  Company Number: ES-AXELLIA-003685

PATIENT
  Age: 66 Year
  Sex: Male

DRUGS (5)
  1. FIDAXOMICIN [Suspect]
     Active Substance: FIDAXOMICIN
     Indication: CLOSTRIDIUM DIFFICILE INFECTION
     Route: 048
  2. ZINPLAVA [Suspect]
     Active Substance: BEZLOTOXUMAB
     Indication: CLOSTRIDIUM DIFFICILE INFECTION
     Route: 042
     Dates: start: 2019
  3. ADALIMUMAB [Concomitant]
     Active Substance: ADALIMUMAB
     Indication: NEOPLASM
  4. METRONIDAZOLE. [Suspect]
     Active Substance: METRONIDAZOLE
     Indication: CLOSTRIDIUM DIFFICILE INFECTION
     Route: 042
  5. VANCOMYCIN [Suspect]
     Active Substance: VANCOMYCIN
     Indication: CLOSTRIDIUM DIFFICILE INFECTION
     Dates: start: 2019

REACTIONS (2)
  - Arthritis [Unknown]
  - Clostridium difficile infection [Recovered/Resolved]

NARRATIVE: CASE EVENT DATE: 2019
